FAERS Safety Report 6700312-2 (Version None)
Quarter: 2010Q2

REPORT INFORMATION
  Report Type: 
  Country: None (occurrence: None)
  Receive Date: 20100428
  Receipt Date: 20100420
  Transmission Date: 20101027
  Serious: Yes (Death)
  Sender: FDA-Public Use
  Company Number: DE-ROCHE-685146

PATIENT
  Sex: Female
  Weight: 60 kg

DRUGS (1)
  1. TRASTUZUMAB [Suspect]
     Route: 065
     Dates: start: 20080416, end: 20090317

REACTIONS (1)
  - MALIGNANT NEOPLASM PROGRESSION [None]
